FAERS Safety Report 14467342 (Version 3)
Quarter: 2018Q1

REPORT INFORMATION
  Report Type: Spontaneous
  Country: US (occurrence: US)
  Receive Date: 20180131
  Receipt Date: 20180309
  Transmission Date: 20180509
  Serious: No
  Sender: FDA-Public Use
  Company Number: US-AUROBINDO-AUR-APL-2018-003304

PATIENT
  Age: 29 Year
  Sex: Male

DRUGS (3)
  1. DIVALPROEX [Suspect]
     Active Substance: DIVALPROEX SODIUM
     Dosage: ()
  2. DIVALPROEX [Suspect]
     Active Substance: DIVALPROEX SODIUM
     Indication: AFFECTIVE DISORDER
     Dosage: ()
  3. DIVALPROEX [Suspect]
     Active Substance: DIVALPROEX SODIUM
     Indication: AFFECTIVE DISORDER
     Dosage: UNK
     Route: 065

REACTIONS (8)
  - Hypocalcaemia [Unknown]
  - Hyperammonaemia [Unknown]
  - Anion gap increased [Unknown]
  - Toxicity to various agents [Unknown]
  - Hypernatraemia [Unknown]
  - Lactic acidosis [Unknown]
  - Hyperkalaemia [Unknown]
  - Overdose [Recovering/Resolving]
